FAERS Safety Report 6936672-7 (Version None)
Quarter: 2010Q3

REPORT INFORMATION
  Report Type: 
  Country: None (occurrence: None)
  Receive Date: 20100818
  Receipt Date: 20100805
  Transmission Date: 20110219
  Serious: Yes (Hospitalization, Other)
  Sender: FDA-Public Use
  Company Number: 7005821

PATIENT
  Age: 44 Year
  Sex: Male
  Weight: 130 kg

DRUGS (3)
  1. NOVANTRONE [Suspect]
     Indication: MULTIPLE SCLEROSIS
     Dosage: 12 MG/M2, 1 IN 3 M, INTRAVENOUS (NOT OTHERWISE SPECIFIED)
     Route: 042
     Dates: start: 20070831, end: 20090807
  2. COPAXONE [Suspect]
     Indication: MULTIPLE SCLEROSIS
     Dosage: SUBCUTANEOUS; 20 MG SUBCUTANEOUS
     Route: 058
     Dates: start: 20020101, end: 20070101
  3. COPAXONE [Suspect]
     Indication: MULTIPLE SCLEROSIS
     Dosage: SUBCUTANEOUS; 20 MG SUBCUTANEOUS
     Route: 058
     Dates: start: 20100201, end: 20100518

REACTIONS (10)
  - ACUTE PROMYELOCYTIC LEUKAEMIA [None]
  - CEREBROVASCULAR ACCIDENT [None]
  - CHOLECYSTITIS [None]
  - DEEP VEIN THROMBOSIS [None]
  - DISSEMINATED INTRAVASCULAR COAGULATION [None]
  - EJECTION FRACTION DECREASED [None]
  - ELECTROCARDIOGRAM ABNORMAL [None]
  - HEMIPLEGIA [None]
  - PANCYTOPENIA [None]
  - UPPER GASTROINTESTINAL HAEMORRHAGE [None]
